FAERS Safety Report 9466631 (Version 2)
Quarter: 2013Q3

REPORT INFORMATION
  Report Type: Spontaneous
  Country: FR (occurrence: FR)
  Receive Date: 20130820
  Receipt Date: 20130829
  Transmission Date: 20140515
  Serious: Yes (Hospitalization)
  Sender: FDA-Public Use
  Company Number: FR-BAYER-2013-096240

PATIENT
  Age: 68 Year
  Sex: Female
  Weight: 65 kg

DRUGS (3)
  1. GADOVIST [Suspect]
     Indication: NUCLEAR MAGNETIC RESONANCE IMAGING BRAIN
     Dosage: 6 ML, ONCE
     Dates: start: 20130807, end: 20130807
  2. GADOVIST [Suspect]
     Indication: VERTIGO
  3. ALCOHOL [Concomitant]
     Indication: INFECTION PROPHYLAXIS
     Route: 003

REACTIONS (11)
  - Cardiogenic shock [Recovering/Resolving]
  - Malaise [Recovering/Resolving]
  - Paraesthesia [Recovering/Resolving]
  - Generalised erythema [Recovering/Resolving]
  - Labile blood pressure [Recovering/Resolving]
  - Loss of consciousness [Recovering/Resolving]
  - Blood pressure decreased [Recovering/Resolving]
  - Arrhythmia [Recovering/Resolving]
  - Erythema [Recovering/Resolving]
  - Oxygen saturation decreased [Recovering/Resolving]
  - Cyanosis [Recovering/Resolving]
